FAERS Safety Report 14523751 (Version 5)
Quarter: 2019Q2

REPORT INFORMATION
  Report Type: Report from Study
  Country: CA (occurrence: CA)
  Receive Date: 20180213
  Receipt Date: 20190605
  Transmission Date: 20190711
  Serious: Yes (Hospitalization, Other)
  Sender: FDA-Public Use
  Company Number: CA-BRISTOL-MYERS SQUIBB COMPANY-BMS-2018-009852

PATIENT
  Age: 84 Year
  Sex: Female

DRUGS (1)
  1. ABATACEPT [Suspect]
     Active Substance: ABATACEPT
     Indication: RHEUMATOID ARTHRITIS
     Dosage: 500 MG, Q4WK
     Route: 042
     Dates: start: 20130829

REACTIONS (4)
  - Appendix disorder [Recovering/Resolving]
  - Cataract [Unknown]
  - Urinary tract infection [Recovered/Resolved]
  - Basal cell carcinoma [Unknown]

NARRATIVE: CASE EVENT DATE: 20180212
